FAERS Safety Report 7912373-3 (Version None)
Quarter: 2011Q4

REPORT INFORMATION
  Report Type: 
  Country: None (occurrence: None)
  Receive Date: 20111114
  Receipt Date: 20111107
  Transmission Date: 20120403
  Serious: Yes (Other)
  Sender: FDA-Public Use
  Company Number: DE-UCBSA-036233

PATIENT
  Sex: Male
  Weight: 90 kg

DRUGS (2)
  1. KEPPRA [Suspect]
     Indication: EPILEPSY
     Dosage: 750-0-1125 MG
     Route: 048
     Dates: start: 20090901, end: 20110901
  2. CARBAMAZEPIN HEXAL [Concomitant]
     Indication: EPILEPSY
     Dosage: TOTAL DAILY DOSE: 1400(AS REPORTED)
     Route: 048
     Dates: start: 19970101

REACTIONS (3)
  - ECZEMA [None]
  - HYPERHIDROSIS [None]
  - CONVULSION [None]
